FAERS Safety Report 6739306-X (Version None)
Quarter: 2010Q2

REPORT INFORMATION
  Report Type: 
  Country: None (occurrence: None)
  Receive Date: 20100525
  Receipt Date: 20100512
  Transmission Date: 20101027
  Serious: Yes (Hospitalization)
  Sender: FDA-Public Use
  Company Number: GB-JNJFOC-20100303492

PATIENT
  Sex: Male
  Weight: 18.8 kg

DRUGS (4)
  1. CALPROFEN [Suspect]
     Route: 048
  2. CALPROFEN [Suspect]
     Indication: PYREXIA
     Route: 048
  3. CALPOL [Concomitant]
  4. IBUPROFEN TABLETS [Concomitant]

REACTIONS (2)
  - GASTRITIS [None]
  - HAEMATEMESIS [None]
